FAERS Safety Report 6579477-1 (Version None)
Quarter: 2010Q1

REPORT INFORMATION
  Report Type: 
  Country: None (occurrence: None)
  Receive Date: 20100209
  Receipt Date: 20100209
  Transmission Date: 20100710
  Serious: Yes (Hospitalization)
  Sender: FDA-Public Use
  Company Number: None

PATIENT
  Age: 31 Year
  Sex: Female
  Weight: 83.4619 kg

DRUGS (1)
  1. LEXAPOR 20MG RX#156792 [Suspect]
     Indication: DEPRESSION
     Dosage: 20MG 1 A DAY
     Dates: start: 20100204, end: 20100204

REACTIONS (8)
  - ABNORMAL DREAMS [None]
  - BALANCE DISORDER [None]
  - CONFUSIONAL STATE [None]
  - CONVULSION [None]
  - DISTURBANCE IN ATTENTION [None]
  - MALAISE [None]
  - NAUSEA [None]
  - TREMOR [None]
